FAERS Safety Report 9734314 (Version 2)
Quarter: 2014Q1

REPORT INFORMATION
  Report Type: Report from Study
  Country: MX (occurrence: MX)
  Receive Date: 20131206
  Receipt Date: 20140227
  Transmission Date: 20141002
  Serious: Yes (Other)
  Sender: FDA-Public Use
  Company Number: MX-ROCHE-1312291

PATIENT
  Age: 54 Year
  Sex: Female

DRUGS (2)
  1. RANIBIZUMAB [Suspect]
     Indication: LACRIMATION INCREASED
     Dosage: DOSE 0.5 MG/0.05 ML
     Route: 050
     Dates: start: 201307
  2. RANIBIZUMAB [Suspect]
     Route: 050
     Dates: start: 20131020

REACTIONS (7)
  - Eye haemorrhage [Unknown]
  - Visual acuity reduced [Not Recovered/Not Resolved]
  - Blood pressure increased [Not Recovered/Not Resolved]
  - Lacrimation increased [Not Recovered/Not Resolved]
  - Drug ineffective [Unknown]
  - Inappropriate schedule of drug administration [Unknown]
  - Off label use [Unknown]
